FAERS Safety Report 5769592-4 (Version None)
Quarter: 2008Q2

REPORT INFORMATION
  Report Type: 
  Country: None (occurrence: None)
  Receive Date: 20080612
  Receipt Date: 20080404
  Transmission Date: 20081010
  Serious: No
  Sender: FDA-Public Use
  Company Number: US-ABBOTT-08P-163-0445636-00

PATIENT
  Sex: Female
  Weight: 127.12 kg

DRUGS (14)
  1. HUMIRA [Suspect]
     Indication: CROHN'S DISEASE
     Route: 058
     Dates: start: 20080329
  2. HUMIRA [Suspect]
     Route: 058
     Dates: start: 20080330
  3. HUMIRA [Suspect]
     Route: 058
  4. IL-THYROXINE [Concomitant]
     Indication: HORMONE REPLACEMENT THERAPY
     Route: 048
  5. VITAMIN TAB [Concomitant]
     Indication: DRUG USE FOR UNKNOWN INDICATION
     Route: 048
  6. PIOGLITAZONE [Concomitant]
     Indication: DIABETES MELLITUS
     Route: 048
  7. METFORMIN HCL [Concomitant]
     Indication: DIABETES MELLITUS
     Route: 048
  8. DICYCLOVERINE [Concomitant]
     Indication: CROHN'S DISEASE
     Route: 048
  9. LISINOPRIL [Concomitant]
     Indication: HYPERTENSION
     Route: 048
  10. AZATHIOPRINE [Concomitant]
     Indication: CROHN'S DISEASE
     Route: 048
  11. GLYBURIDE [Concomitant]
     Indication: DIABETES MELLITUS
     Route: 048
  12. OPIUM ALKALOIDS TOTAL [Concomitant]
     Indication: CROHN'S DISEASE
     Route: 048
  13. OXYCODONE HCL [Concomitant]
     Indication: PAIN
     Route: 048
  14. ANTIBIOTICS [Concomitant]
     Indication: FISTULA
     Route: 048

REACTIONS (1)
  - MUSCLE SPASMS [None]
